FAERS Safety Report 8263979-6 (Version None)
Quarter: 2012Q2

REPORT INFORMATION
  Report Type: 
  Country: None (occurrence: None)
  Receive Date: 20120406
  Receipt Date: 20120329
  Transmission Date: 20120825
  Serious: Yes (Hospitalization)
  Sender: FDA-Public Use
  Company Number: US-BIOGENIDEC-2012BI011178

PATIENT
  Age: 65 Year
  Sex: Female

DRUGS (2)
  1. AVONEX [Suspect]
     Route: 030
     Dates: start: 20030101
  2. AVONEX [Suspect]
     Indication: MULTIPLE SCLEROSIS
     Route: 030
     Dates: start: 19990627, end: 20030101

REACTIONS (7)
  - HAEMOGLOBIN DECREASED [None]
  - GASTRITIS [None]
  - FALL [None]
  - BLOOD IRON DECREASED [None]
  - GAIT DISTURBANCE [None]
  - WRIST FRACTURE [None]
  - MULTIPLE SCLEROSIS RELAPSE [None]
